FAERS Safety Report 4693691-1 (Version None)
Quarter: 2005Q2

REPORT INFORMATION
  Report Type: 
  Country: None (occurrence: None)
  Receive Date: 20050615
  Receipt Date: 20050531
  Transmission Date: 20051028
  Serious: Yes (Hospitalization, Other)
  Sender: FDA-Public Use
  Company Number: USA040978585

PATIENT
  Age: 54 Year
  Sex: Male
  Weight: 67 kg

DRUGS (11)
  1. FORTEO [Suspect]
     Dosage: 20 UG/1 DAY
     Dates: start: 20031101
  2. CEFAZOLIN [Concomitant]
  3. LORCET-HD [Concomitant]
  4. METHADONE HCL [Concomitant]
  5. ACTONEL [Concomitant]
  6. ARANESP [Concomitant]
  7. ISORDIL [Concomitant]
  8. LEXAPRO [Concomitant]
  9. VITAMIN B-12 [Concomitant]
  10. LASIX [Concomitant]
  11. VASOTEC [Concomitant]

REACTIONS (2)
  - NECROTISING FASCIITIS [None]
  - PHARMACEUTICAL PRODUCT COMPLAINT [None]
